FAERS Safety Report 8815442 (Version 1)
Quarter: 2012Q4

REPORT INFORMATION
  Report Type: 
  Country: US (occurrence: US)
  Receive Date: 20120928
  Receipt Date: 20120928
  Transmission Date: 20130627
  Serious: Yes (Other)
  Sender: FDA-Public Use
  Company Number: US-JNJFOC-20120909580

PATIENT
  Age: 71 Year
  Sex: Female
  Weight: 54.89 kg

DRUGS (6)
  1. TYLENOL ARTHRITIS PAIN [Suspect]
     Indication: ARTHRITIS
     Dosage: 1 caplet 2 times
     Route: 048
     Dates: end: 20120918
  2. TYLENOL ARTHRITIS PAIN [Suspect]
     Indication: TENDONITIS
     Dosage: 1 caplet 2 times
     Route: 048
     Dates: end: 20120918
  3. DIOVAN [Concomitant]
     Indication: HYPERTENSION
     Route: 065
  4. HYDROCHLOROTHIAZIDE [Concomitant]
     Indication: SWELLING
     Route: 065
  5. BABY ASPIRIN [Concomitant]
     Indication: CARDIAC DISORDER
     Route: 065
  6. CRESTOR [Concomitant]
     Indication: BLOOD CHOLESTEROL
     Route: 065

REACTIONS (4)
  - Hypotension [Recovering/Resolving]
  - Feeling abnormal [Recovered/Resolved]
  - Chest discomfort [Recovered/Resolved]
  - Sensory disturbance [Recovered/Resolved]
